FAERS Safety Report 20380273 (Version 1)
Quarter: 2022Q1

REPORT INFORMATION
  Report Type: Spontaneous
  Country: PT (occurrence: PT)
  Receive Date: 20220126
  Receipt Date: 20220126
  Transmission Date: 20220424
  Serious: Yes (Other)
  Sender: FDA-Public Use
  Company Number: PT-MLMSERVICE-20220107-3306740-1

PATIENT
  Sex: Female

DRUGS (1)
  1. VALPROIC ACID [Suspect]
     Active Substance: VALPROIC ACID
     Indication: Bipolar disorder
     Dosage: UNK
     Route: 065
     Dates: end: 2018

REACTIONS (4)
  - Drug intolerance [Unknown]
  - Hyperammonaemia [Unknown]
  - Confusional state [Unknown]
  - Leukopenia [Unknown]
